FAERS Safety Report 5829865-3 (Version None)
Quarter: 2008Q3

REPORT INFORMATION
  Report Type: 
  Country: None (occurrence: None)
  Receive Date: 20080729
  Receipt Date: 20080717
  Transmission Date: 20090109
  Serious: Yes (Other)
  Sender: FDA-Public Use
  Company Number: 2008BI012698

PATIENT
  Age: 48 Year
  Sex: Male

DRUGS (18)
  1. AVONEX [Suspect]
     Indication: MULTIPLE SCLEROSIS
     Dosage: 30 UG; QW; IM
     Route: 030
     Dates: start: 19990201, end: 20080516
  2. LEVITRA [Concomitant]
  3. LOVASTATIN [Concomitant]
  4. BACLOFEN [Concomitant]
  5. GABAPENTIN [Concomitant]
  6. CLONAZEPAM [Concomitant]
  7. FLUOXETINE [Concomitant]
  8. SEROQUEL [Concomitant]
  9. DEPAKOTE [Concomitant]
  10. VALPORIC ACID [Concomitant]
  11. AMANTADINE HCL [Concomitant]
  12. STOOL SOFTENER [Concomitant]
  13. FLUTICASONE PROPIONATE [Concomitant]
  14. ABILIFY [Concomitant]
  15. TRAZODONE HCL [Concomitant]
  16. METHYLPREDNISOLONE [Concomitant]
  17. ALLOPURINOL [Concomitant]
  18. GLEEVEC [Concomitant]

REACTIONS (1)
  - CHRONIC MYELOID LEUKAEMIA [None]
